FAERS Safety Report 16673657 (Version 1)
Quarter: 2019Q3

REPORT INFORMATION
  Report Type: Spontaneous
  Country: NO (occurrence: NO)
  Receive Date: 20190806
  Receipt Date: 20190806
  Transmission Date: 20191004
  Serious: Yes (Hospitalization)
  Sender: FDA-Public Use
  Company Number: NO-PFIZER INC-2019329839

PATIENT
  Age: 53 Year
  Sex: Male

DRUGS (7)
  1. PREDNISOLON [PREDNISOLONE] [Concomitant]
     Active Substance: PREDNISOLONE
     Indication: GOUT
     Dosage: 5 MG, 1X/DAY
     Route: 048
  2. PANTOPRAZOLE [Concomitant]
     Active Substance: PANTOPRAZOLE
     Dosage: 20 MG, 1X/DAY
     Route: 048
  3. ATORVASTATIN CALCIUM. [Suspect]
     Active Substance: ATORVASTATIN CALCIUM
     Dosage: 40 MG, 1X/DAY
     Route: 048
     Dates: end: 201907
  4. ALLOPUR [Interacting]
     Active Substance: ALLOPURINOL
     Indication: GOUT
     Dosage: DOSE INCREASED LATELY TO A DAILY DOSE OF 400 MG.
     Route: 048
     Dates: end: 201907
  5. ENALAPRIL [Concomitant]
     Active Substance: ENALAPRIL
     Dosage: 5 MG, 1X/DAY
     Route: 048
  6. ACETYLSALICYLIC ACID [Concomitant]
     Active Substance: ASPIRIN
     Dosage: 75 MG, 1X/DAY
     Route: 048
  7. TICAGRELOR. [Concomitant]
     Active Substance: TICAGRELOR
     Dosage: 60 MG, EVERY 12 HOUR
     Route: 048

REACTIONS (12)
  - Diarrhoea [Recovering/Resolving]
  - Liver injury [Recovering/Resolving]
  - Pyrexia [Recovering/Resolving]
  - Vomiting [Recovering/Resolving]
  - Hepatic steatosis [Unknown]
  - Gamma-glutamyltransferase increased [Unknown]
  - Drug interaction [Recovering/Resolving]
  - Headache [Recovering/Resolving]
  - Chest discomfort [Recovering/Resolving]
  - General physical health deterioration [Recovering/Resolving]
  - Blood alkaline phosphatase increased [Unknown]
  - Hyperhidrosis [Recovering/Resolving]

NARRATIVE: CASE EVENT DATE: 201906
